FAERS Safety Report 4727743-4 (Version None)
Quarter: 2005Q3

REPORT INFORMATION
  Report Type: 
  Country: None (occurrence: None)
  Receive Date: 20050725
  Receipt Date: 20050524
  Transmission Date: 20060218
  Serious: No
  Sender: FDA-Public Use
  Company Number: USA050598883

PATIENT
  Age: 19 Year
  Sex: Male

DRUGS (4)
  1. STRATTERA [Suspect]
     Indication: ATTENTION DEFICIT/HYPERACTIVITY DISORDER
     Dosage: 80 MG DAY
     Dates: start: 20040101
  2. ABILIFY [Concomitant]
  3. GEODON [Concomitant]
  4. ZOLOFT [Concomitant]

REACTIONS (1)
  - BLEPHAROSPASM [None]
